FAERS Safety Report 9913209 (Version 1)
Quarter: 2014Q1

REPORT INFORMATION
  Report Type: Spontaneous
  Country: US (occurrence: None)
  Receive Date: 20140218
  Receipt Date: 20140218
  Transmission Date: 20141002
  Serious: Yes (Other)
  Sender: FDA-Public Use
  Company Number: None

PATIENT
  Sex: 0

DRUGS (1)
  1. PROTAMINE [Suspect]
     Indication: HEPARIN NEUTRALISATION THERAPY
     Dates: start: 20140205, end: 20140205

REACTIONS (2)
  - Drug ineffective [None]
  - Product quality issue [None]
